FAERS Safety Report 5278485-0 (Version None)
Quarter: 2007Q1

REPORT INFORMATION
  Report Type: 
  Country: None (occurrence: None)
  Receive Date: 20070328
  Receipt Date: 20070322
  Transmission Date: 20070707
  Serious: Yes (Hospitalization)
  Sender: FDA-Public Use
  Company Number: 2007SE01628

PATIENT
  Age: 74 Year
  Sex: Female

DRUGS (6)
  1. BLOPRESS [Suspect]
     Indication: HYPERTENSION
     Route: 048
  2. BEZAFIBRATE [Concomitant]
     Route: 048
  3. BUP-4 [Concomitant]
     Route: 048
  4. MIDENAL [Concomitant]
     Route: 048
  5. TANATRIL [Concomitant]
     Route: 048
  6. ALOSEN [Concomitant]
     Route: 048

REACTIONS (1)
  - RHABDOMYOLYSIS [None]
